FAERS Safety Report 16067426 (Version 1)
Quarter: 2019Q1

REPORT INFORMATION
  Report Type: Other
  Country: FR (occurrence: FR)
  Receive Date: 20190313
  Receipt Date: 20190313
  Transmission Date: 20190418
  Serious: Yes (Death, Other)
  Sender: FDA-Public Use
  Company Number: FR-PROVELL PHARMACEUTICALS-2063928

PATIENT
  Age: 68 Year
  Sex: Male

DRUGS (14)
  1. BEXAROTENE. [Concomitant]
     Active Substance: BEXAROTENE
  2. EUTHYROX [Suspect]
     Active Substance: LEVOTHYROXINE SODIUM
     Indication: HYPOTHYROIDISM
  3. PREDNISOLONE. [Suspect]
     Active Substance: PREDNISOLONE
     Route: 065
  4. GEMCITABINE [Suspect]
     Active Substance: GEMCITABINE\GEMCITABINE HYDROCHLORIDE
  5. PLAVIX [Concomitant]
     Active Substance: CLOPIDOGREL BISULFATE
     Route: 065
  6. TARGRETIN [Suspect]
     Active Substance: BEXAROTENE
     Route: 065
  7. BEXAROTENE. [Suspect]
     Active Substance: BEXAROTENE
  8. TACROLIMUS. [Suspect]
     Active Substance: TACROLIMUS
     Dates: start: 1995
  9. BEXAROTENE. [Concomitant]
     Active Substance: BEXAROTENE
  10. INEXIUM [Concomitant]
     Active Substance: ESOMEPRAZOLE
     Route: 065
  11. LOXEN [NICARDIPINE HYDROCHLORIDE] [Concomitant]
     Active Substance: NICARDIPINE HYDROCHLORIDE
     Route: 065
  12. MYCOPHENOLATE MOFETIL. [Suspect]
     Active Substance: MYCOPHENOLATE MOFETIL
     Route: 065
  13. FENOFIBRATE. [Suspect]
     Active Substance: FENOFIBRATE
  14. MECHLORETHAMINE [Concomitant]
     Active Substance: MECHLORETHAMINE
     Route: 065

REACTIONS (13)
  - Palmoplantar keratoderma [Recovering/Resolving]
  - Weight decreased [Unknown]
  - Septic shock [Fatal]
  - Staphylococcal bacteraemia [Fatal]
  - Chronic kidney disease [Not Recovered/Not Resolved]
  - Skin plaque [Recovering/Resolving]
  - Dermatitis psoriasiform [Recovering/Resolving]
  - Drug ineffective [Unknown]
  - Hypertriglyceridaemia [Not Recovered/Not Resolved]
  - Mycosis fungoides [Recovering/Resolving]
  - Mycosis fungoides [Recovering/Resolving]
  - Alopecia [Recovering/Resolving]
  - Thyroid stimulating hormone deficiency [Recovered/Resolved]

NARRATIVE: CASE EVENT DATE: 201408
